FAERS Safety Report 10525665 (Version 1)
Quarter: 2014Q4

REPORT INFORMATION
  Report Type: Report from Study
  Country: US (occurrence: US)
  Receive Date: 20141017
  Receipt Date: 20141017
  Transmission Date: 20150528
  Serious: Yes (Hospitalization, Other)
  Sender: FDA-Public Use
  Company Number: PHHO2014US013517

PATIENT
  Age: 66 Year
  Sex: Female
  Weight: 65.9 kg

DRUGS (13)
  1. LEVOTHYROXINE [Concomitant]
     Active Substance: LEVOTHYROXINE
  2. ASPIRIN. [Concomitant]
     Active Substance: ASPIRIN
  3. INSULIN [Concomitant]
     Active Substance: INSULIN NOS
  4. TACROLIMUS. [Suspect]
     Active Substance: TACROLIMUS
     Indication: RENAL TRANSPLANT
     Dosage: 1 MG, BID
     Route: 048
     Dates: start: 20131025
  5. CARVEDILOL. [Concomitant]
     Active Substance: CARVEDILOL
  6. FISH OIL [Concomitant]
     Active Substance: FISH OIL
  7. LASIX [Concomitant]
     Active Substance: FUROSEMIDE
  8. IRON SUPPLEMENTS [Concomitant]
     Active Substance: IRON
     Dosage: WEEKLY
     Route: 042
  9. SIMVASTATIN. [Concomitant]
     Active Substance: SIMVASTATIN
  10. PROCRIT//EPOETIN ALFA [Concomitant]
     Indication: ANAEMIA
     Dosage: WEEKLY
     Route: 042
  11. DAPSONE. [Concomitant]
     Active Substance: DAPSONE
  12. MYFORTIC [Suspect]
     Active Substance: MYCOPHENOLATE SODIUM
     Indication: RENAL TRANSPLANT
     Dosage: 720 MG, BID
     Route: 048
     Dates: start: 20131025
  13. PLAVIX [Concomitant]
     Active Substance: CLOPIDOGREL BISULFATE

REACTIONS (1)
  - Adenocarcinoma of colon [Unknown]

NARRATIVE: CASE EVENT DATE: 20140903
